FAERS Safety Report 5535770-2 (Version None)
Quarter: 2007Q4

REPORT INFORMATION
  Report Type: 
  Country: None (occurrence: None)
  Receive Date: 20071203
  Receipt Date: 20071203
  Transmission Date: 20080405
  Serious: Yes (Life-Threatening, Hospitalization)
  Sender: FDA-Public Use
  Company Number: None

PATIENT
  Age: 41 Year
  Sex: Male

DRUGS (2)
  1. PERPHENAZINE [Suspect]
     Dates: start: 20071103, end: 20071103
  2. METOPROLOL [Suspect]
     Dates: start: 20071103, end: 20071103

REACTIONS (4)
  - BLOOD PRESSURE INCREASED [None]
  - INTENTIONAL OVERDOSE [None]
  - MULTIPLE DRUG OVERDOSE [None]
  - SEDATION [None]
